FAERS Safety Report 9630329 (Version 2)
Quarter: 2013Q4

REPORT INFORMATION
  Report Type: Report from Study
  Country: FR (occurrence: FR)
  Receive Date: 20131018
  Receipt Date: 20131031
  Transmission Date: 20140711
  Serious: Yes (Death)
  Sender: FDA-Public Use
  Company Number: FR-ROCHE-1290688

PATIENT
  Age: 44 Year
  Sex: Female
  Weight: 31 kg

DRUGS (5)
  1. ZELBORAF [Suspect]
     Indication: MALIGNANT MELANOMA
     Route: 048
     Dates: start: 20130211
  2. SKENAN [Concomitant]
     Route: 065
  3. ACTISKENAN [Concomitant]
     Route: 065
  4. MACROGOL [Concomitant]
  5. EFFERALGAN [Concomitant]
     Route: 065

REACTIONS (2)
  - Disease progression [Fatal]
  - Photosensitivity reaction [Unknown]
